FAERS Safety Report 9512051 (Version 2)
Quarter: 2013Q3

REPORT INFORMATION
  Report Type: Spontaneous
  Country: JP (occurrence: JP)
  Receive Date: 20130910
  Receipt Date: 20130912
  Transmission Date: 20140515
  Serious: Yes (Hospitalization, Other)
  Sender: FDA-Public Use
  Company Number: JP-PFIZER INC-2013258236

PATIENT
  Age: 36 Year
  Sex: Male
  Weight: 76.8 kg

DRUGS (6)
  1. FOSPHENYTOIN SODIUM [Suspect]
     Indication: STATUS EPILEPTICUS
     Dosage: 22.5 MG/KG, 1X/DAY
     Route: 042
     Dates: start: 20130829, end: 20130829
  2. FOSPHENYTOIN SODIUM [Suspect]
     Dosage: MAINTENANCE DOSE 7.5 MG/KG X 1
     Route: 042
     Dates: start: 20130830, end: 20130831
  3. DIPRIVAN [Suspect]
     Indication: SEDATION
     Dosage: 4 ML/HR (MAX 15ML/HR)
     Dates: start: 20130829, end: 20130830
  4. RINGERSTERIL [Concomitant]
     Dosage: ACETATED RINGER^S SOLUTION
  5. VEEN D [Concomitant]
     Dosage: GLUCOSE ACETATED RINGER^S SOLUTION
  6. TAKEPRON [Concomitant]
     Dosage: UNK

REACTIONS (3)
  - Rhabdomyolysis [Recovering/Resolving]
  - Liver disorder [Recovering/Resolving]
  - Disseminated intravascular coagulation [Recovering/Resolving]
